FAERS Safety Report 8865515 (Version 2)
Quarter: 2013Q3

REPORT INFORMATION
  Report Type: Spontaneous
  Country: US (occurrence: US)
  Receive Date: 20121024
  Receipt Date: 20130930
  Transmission Date: 20140515
  Serious: No
  Sender: FDA-Public Use
  Company Number: US-AMGEN-USASP2012003302

PATIENT
  Age: 55 Year
  Sex: Female
  Weight: 83.9 kg

DRUGS (5)
  1. ENBREL [Suspect]
     Indication: PRODUCT USED FOR UNKNOWN INDICATION
     Dosage: 25 MG, 2 TIMES A WEEK
  2. PREDNISONE [Concomitant]
     Dosage: 1 MG, UNK
  3. RESTASIS [Concomitant]
     Dosage: 0.05 %, UNK
  4. CLOBETASOL E [Concomitant]
     Dosage: 0.05 %, UNK
  5. AUGMENTIN                          /00756801/ [Concomitant]
     Dosage: 250 MG, UNK

REACTIONS (3)
  - Sinusitis [Unknown]
  - Gastroenteritis viral [Unknown]
  - Ear infection [Unknown]
